FAERS Safety Report 9859231 (Version 2)
Quarter: 2014Q2

REPORT INFORMATION
  Report Type: Spontaneous
  Country: SE (occurrence: SE)
  Receive Date: 20140131
  Receipt Date: 20140430
  Transmission Date: 20141212
  Serious: Yes (Other)
  Sender: FDA-Public Use
  Company Number: SE-BRISTOL-MYERS SQUIBB COMPANY-20068987

PATIENT
  Age: 54 Year
  Sex: Male
  Weight: 130 kg

DRUGS (11)
  1. FORXIGA [Suspect]
     Dosage: FILMDRAGERAD TABLETT
     Dates: start: 20130820, end: 20131202
  2. DESMOPRESSIN ACETATE [Concomitant]
  3. LEVAXIN [Concomitant]
  4. HYDROCORTISONE [Concomitant]
  5. PLAVIX [Concomitant]
  6. TESTOSTERONE UNDECANOATE [Concomitant]
  7. NORDITROPIN [Concomitant]
  8. CANDESARTAN [Concomitant]
  9. METFORMIN [Concomitant]
  10. INSULATARD [Concomitant]
  11. LOPERAMIDE [Concomitant]

REACTIONS (5)
  - Urinary incontinence [Recovered/Resolved with Sequelae]
  - Faecal incontinence [Recovered/Resolved with Sequelae]
  - Diarrhoea [Recovered/Resolved with Sequelae]
  - Wrong technique in drug usage process [Unknown]
  - Off label use [Unknown]
